FAERS Safety Report 5390215-0 (Version None)
Quarter: 2007Q3

REPORT INFORMATION
  Report Type: 
  Country: None (occurrence: None)
  Receive Date: 20070716
  Receipt Date: 20061026
  Transmission Date: 20080115
  Serious: Yes (Hospitalization)
  Sender: FDA-Public Use
  Company Number: MPS1-10602

PATIENT
  Age: 4 Year
  Sex: Male
  Weight: 17 kg

DRUGS (5)
  1. ALDURAZYME [Suspect]
     Indication: MUCOPOLYSACCHARIDOSIS I
     Dosage: 2500 UNITS 1XW IV
     Route: 042
     Dates: start: 20030201, end: 20061025
  2. ALDURAZYME [Suspect]
     Indication: MUCOPOLYSACCHARIDOSIS I
     Dosage: 2000 UNITS 1XW IV
     Route: 042
     Dates: start: 20030101
  3. ALDURAZYME [Suspect]
     Indication: MUCOPOLYSACCHARIDOSIS I
     Dosage: 175 U/KG IXW IV
     Route: 042
     Dates: start: 20020101
  4. TELFAST [Concomitant]
  5. SOLU-MEDROL [Concomitant]

REACTIONS (5)
  - COUGH [None]
  - DRUG INEFFECTIVE [None]
  - GENERALISED ERYTHEMA [None]
  - OXYGEN SATURATION DECREASED [None]
  - WHEEZING [None]
